FAERS Safety Report 9122483 (Version 2)
Quarter: 2013Q2

REPORT INFORMATION
  Report Type: Spontaneous
  Country: FR (occurrence: FR)
  Receive Date: 20130114
  Receipt Date: 20130419
  Transmission Date: 20140414
  Serious: Yes (Hospitalization)
  Sender: FDA-Public Use
  Company Number: FR-ELI_LILLY_AND_COMPANY-FR201301003238

PATIENT
  Age: 62 Year
  Sex: Male

DRUGS (7)
  1. GEMZAR [Suspect]
     Indication: ADENOCARCINOMA PANCREAS
     Dosage: 1880 MG, UNK
     Route: 042
     Dates: start: 20120928, end: 20121012
  2. GEMZAR [Suspect]
     Dosage: 1480 MG, UNK
     Route: 042
     Dates: start: 20121022
  3. TOCO [Concomitant]
     Dosage: 500 MG, UNK
  4. PIASCLEDINE                        /00809501/ [Concomitant]
     Dosage: 300 MG, BID
  5. SOPROL [Concomitant]
     Indication: HYPERTENSION
     Dosage: 10 MG, UNK
  6. XELODA [Concomitant]
     Dosage: UNK
     Dates: start: 20121126
  7. XELODA [Concomitant]
     Dosage: UNK
     Dates: start: 20121224

REACTIONS (3)
  - Renal failure [Recovered/Resolved]
  - Hepatocellular injury [Recovered/Resolved]
  - Cholestasis [Recovered/Resolved]
